FAERS Safety Report 7912082-0 (Version None)
Quarter: 2011Q4

REPORT INFORMATION
  Report Type: 
  Country: None (occurrence: None)
  Receive Date: 20111114
  Receipt Date: 20111102
  Transmission Date: 20120403
  Serious: Yes (Hospitalization)
  Sender: FDA-Public Use
  Company Number: US-SANOFI-AVENTIS-2011SA073482

PATIENT
  Age: 56 Year
  Sex: Male
  Weight: 65.8 kg

DRUGS (3)
  1. BEVACIZUMAB [Suspect]
     Dosage: DOSE: OVER 30-90 MIN, DAY 1. TOTAL DOSE OF 975 MG (15 MG/KG).
     Route: 042
     Dates: start: 20110727, end: 20110727
  2. CISPLATIN [Suspect]
     Dosage: DOSE: OVER 1-2 HRS, DAY 1, TOTAL DOSE OF 130 MG (75 MG/M2)
     Route: 042
     Dates: start: 20110727, end: 20110727
  3. DOCETAXEL [Suspect]
     Dosage: DOSE: 1 HR, DAY 1, TOTAL DOSE OF 130 MG (75MG/M2)
     Route: 042
     Dates: start: 20110727, end: 20110727

REACTIONS (11)
  - PRODUCTIVE COUGH [None]
  - ASTHENIA [None]
  - PANCYTOPENIA [None]
  - PSYCHOTIC DISORDER [None]
  - DEHYDRATION [None]
  - FATIGUE [None]
  - HALLUCINATION, VISUAL [None]
  - DELIRIUM [None]
  - ASPIRATION [None]
  - BARIUM SWALLOW ABNORMAL [None]
  - LUNG INFILTRATION [None]
